FAERS Safety Report 8707665 (Version 2)
Quarter: 2013Q4

REPORT INFORMATION
  Report Type: Report from Study
  Country: US (occurrence: US)
  Receive Date: 20120806
  Receipt Date: 20131031
  Transmission Date: 20140711
  Serious: No
  Sender: FDA-Public Use
  Company Number: US-009507513-2012SP026592

PATIENT
  Age: 50 Year
  Sex: Male
  Weight: 74.83 kg

DRUGS (9)
  1. VICTRELIS [Suspect]
     Indication: HEPATITIS C
     Dosage: 800 MG, TID
     Route: 048
  2. REBETOL [Suspect]
     Indication: HEPATITIS C
     Dosage: 200 MG, UNK
     Route: 065
  3. PEGASYS [Suspect]
     Indication: HEPATITIS C
     Dosage: UNK
  4. RITUXAN [Concomitant]
     Dosage: 100 MG, UNK
  5. CITALOPRAM [Concomitant]
     Dosage: 10 MG, UNK
     Route: 065
  6. LISINOPRIL [Concomitant]
     Dosage: 10 MG, UNK
     Route: 065
  7. VITAMINS (UNSPECIFIED) [Concomitant]
     Dosage: UPDATE (21JUN2012)
     Route: 065
  8. NEUPOGEN [Concomitant]
  9. PROCRIT [Concomitant]
     Dosage: 3000 ML, UNK

REACTIONS (13)
  - Abdominal pain [Unknown]
  - Oral herpes [Unknown]
  - Hyperhidrosis [Unknown]
  - White blood cell count decreased [Unknown]
  - Weight decreased [Unknown]
  - Pyrexia [Unknown]
  - Fatigue [Unknown]
  - Diarrhoea [Unknown]
  - Rash [Unknown]
  - Platelet count decreased [Unknown]
  - Red blood cell count decreased [Unknown]
  - Chills [Unknown]
  - Anaemia [Unknown]
